FAERS Safety Report 6538497-3 (Version None)
Quarter: 2010Q1

REPORT INFORMATION
  Report Type: 
  Country: None (occurrence: None)
  Receive Date: 20100114
  Receipt Date: 20100108
  Transmission Date: 20100710
  Serious: Yes (Other)
  Sender: FDA-Public Use
  Company Number: JP-MERCK-1001USA01047

PATIENT
  Age: 19 Year
  Sex: Female

DRUGS (3)
  1. PEPCID [Suspect]
     Route: 042
  2. PRIMPERAN TAB [Suspect]
     Route: 042
  3. HARTMANN SOLUTION KOBAYASHI [Concomitant]
     Route: 065

REACTIONS (2)
  - DYSPNOEA [None]
  - URTICARIA [None]
